FAERS Safety Report 6213349-7 (Version None)
Quarter: 2009Q2

REPORT INFORMATION
  Report Type: 
  Country: None (occurrence: None)
  Receive Date: 20090601
  Receipt Date: 20090601
  Transmission Date: 20091009
  Serious: Yes (Disabling)
  Sender: FDA-Public Use
  Company Number: None

PATIENT
  Age: 30 Year
  Sex: Female
  Weight: 56.6996 kg

DRUGS (1)
  1. MIRENA [Suspect]
     Indication: CONTRACEPTION
     Dosage: UNKNOWN CONSTANT INTRA-UTERINE
     Route: 015
     Dates: start: 20071217, end: 20081030

REACTIONS (4)
  - DRUG EXPOSURE DURING PREGNANCY [None]
  - IUD MIGRATION [None]
  - PREGNANCY [None]
  - UTERINE RUPTURE [None]
